FAERS Safety Report 18532375 (Version 1)
Quarter: 2020Q4

REPORT INFORMATION
  Report Type: Spontaneous
  Country: FR (occurrence: FR)
  Receive Date: 20201123
  Receipt Date: 20201123
  Transmission Date: 20210114
  Serious: Yes (Hospitalization, Other)
  Sender: FDA-Public Use
  Company Number: FR-TEVA-2020-FR-1845835

PATIENT
  Age: 67 Year
  Sex: Female

DRUGS (5)
  1. SPIRONOLACTONE TEVA 25 MG [Suspect]
     Active Substance: SPIRONOLACTONE
     Dosage: 25 MILLIGRAM DAILY;
     Route: 048
     Dates: start: 20200101, end: 20201028
  2. SOTALOL 80 [Concomitant]
     Dosage: 1 DOSAGE FORMS DAILY;
     Route: 048
     Dates: start: 202001
  3. CANDESARTAN 8 MG [Concomitant]
     Active Substance: CANDESARTAN
     Dosage: 8 MILLIGRAM DAILY;
     Route: 048
     Dates: start: 202001
  4. ALLOPURINOL. [Concomitant]
     Active Substance: ALLOPURINOL
     Dosage: 1 DOSAGE FORMS DAILY;
     Route: 048
     Dates: start: 202001
  5. COLCHICINE. [Concomitant]
     Active Substance: COLCHICINE
     Dosage: 1 DOSAGE FORMS DAILY;
     Route: 048
     Dates: start: 202001

REACTIONS (4)
  - Malaise [Recovering/Resolving]
  - Product odour abnormal [Unknown]
  - Poor quality product administered [Unknown]
  - Throat tightness [Recovering/Resolving]

NARRATIVE: CASE EVENT DATE: 20200925
